FAERS Safety Report 15751049 (Version 1)
Quarter: 2018Q4

REPORT INFORMATION
  Report Type: Spontaneous
  Country: US (occurrence: US)
  Receive Date: 20181221
  Receipt Date: 20181221
  Transmission Date: 20190205
  Serious: No
  Sender: FDA-Public Use
  Company Number: US-THERAPEUTICSMD-2018TMD00338

PATIENT
  Age: 56 Year
  Sex: Female
  Weight: 69.84 kg

DRUGS (4)
  1. TALTZ [Concomitant]
     Active Substance: IXEKIZUMAB
     Route: 051
  2. IMVEXXY [Suspect]
     Active Substance: ESTRADIOL
     Indication: DYSPAREUNIA
  3. DIVIGEL [Suspect]
     Active Substance: ESTRADIOL
     Dosage: UNK, 1X/DAY
     Dates: start: 20181102
  4. IMVEXXY [Suspect]
     Active Substance: ESTRADIOL
     Indication: VULVOVAGINAL DRYNESS
     Dosage: 10 ?G, 3X/WEEK BEFORE BEDTIME
     Route: 067
     Dates: start: 20181102

REACTIONS (7)
  - Swelling [Recovered/Resolved]
  - Headache [Recovering/Resolving]
  - Abdominal distension [Recovered/Resolved]
  - Paraesthesia [Recovered/Resolved]
  - Pruritus generalised [Recovered/Resolved]
  - Muscle spasms [Recovered/Resolved]
  - Off label use [Unknown]

NARRATIVE: CASE EVENT DATE: 201811
